FAERS Safety Report 18039924 (Version 1)
Quarter: 2020Q3

REPORT INFORMATION
  Report Type: Spontaneous
  Country: US (occurrence: US)
  Receive Date: 20200717
  Receipt Date: 20200717
  Transmission Date: 20201103
  Serious: Yes (Other)
  Sender: FDA-Public Use
  Company Number: US-VIFOR (INTERNATIONAL) INC.-VIT-2020-07756

PATIENT
  Age: 68 Year
  Sex: Female

DRUGS (14)
  1. VELTASSA [Suspect]
     Active Substance: PATIROMER
     Route: 048
  2. NIFEDIPINE. [Concomitant]
     Active Substance: NIFEDIPINE
     Dosage: MORNING
  3. SODIUM BICARBONATE. [Concomitant]
     Active Substance: SODIUM BICARBONATE
  4. NIFEDIPINE. [Concomitant]
     Active Substance: NIFEDIPINE
     Dosage: MORNING
  5. LASIX [Concomitant]
     Active Substance: FUROSEMIDE
  6. EZETIMIBE. [Concomitant]
     Active Substance: EZETIMIBE
  7. DOXAZOSIN [Concomitant]
     Active Substance: DOXAZOSIN MESYLATE
  8. SPIRONOLACTONE. [Concomitant]
     Active Substance: SPIRONOLACTONE
  9. SOLIQUA 100/33 [Concomitant]
     Active Substance: INSULIN GLARGINE\LIXISENATIDE
  10. CARVEDILOL. [Concomitant]
     Active Substance: CARVEDILOL
  11. CLOPIDOGREL [Concomitant]
     Active Substance: CLOPIDOGREL BISULFATE
  12. ASPIRIN. [Concomitant]
     Active Substance: ASPIRIN
  13. VELTASSA [Suspect]
     Active Substance: PATIROMER
     Indication: BLOOD POTASSIUM INCREASED
     Route: 048
     Dates: start: 2017
  14. HYDRALAZINE [Concomitant]
     Active Substance: HYDRALAZINE HYDROCHLORIDE

REACTIONS (4)
  - Blood pressure increased [Not Recovered/Not Resolved]
  - Pneumonia [Recovered/Resolved]
  - Renal impairment [Unknown]
  - Influenza [Recovered/Resolved]

NARRATIVE: CASE EVENT DATE: 2018
